FAERS Safety Report 14197817 (Version 1)
Quarter: 2017Q4

REPORT INFORMATION
  Report Type: Report from Study
  Country: BR (occurrence: BR)
  Receive Date: 20171117
  Receipt Date: 20171117
  Transmission Date: 20180321
  Serious: Yes (Hospitalization)
  Sender: FDA-Public Use
  Company Number: BR-UCBSA-2017024818

PATIENT
  Age: 8 Year
  Sex: Male

DRUGS (2)
  1. LEVETIRACETAM. [Suspect]
     Active Substance: LEVETIRACETAM
     Indication: EPILEPSY
     Dosage: 1000 MG, 3X/DAY (TID), 4 TABLETS OF KEPPRA 250MG
     Route: 048
     Dates: start: 20110620
  2. OXCARBAZEPINE. [Concomitant]
     Active Substance: OXCARBAZEPINE
     Indication: PRODUCT USED FOR UNKNOWN INDICATION
     Dosage: 600 MG, UNK

REACTIONS (4)
  - Drug effect incomplete [Unknown]
  - Inappropriate schedule of drug administration [Unknown]
  - Seizure [Not Recovered/Not Resolved]
  - Weight increased [Not Recovered/Not Resolved]

NARRATIVE: CASE EVENT DATE: 20110620
